FAERS Safety Report 7495626-5 (Version None)
Quarter: 2011Q2

REPORT INFORMATION
  Report Type: 
  Country: None (occurrence: None)
  Receive Date: 20110523
  Receipt Date: 20110516
  Transmission Date: 20111010
  Serious: Yes (Other)
  Sender: FDA-Public Use
  Company Number: US-ASTRAZENECA-2009UW03112

PATIENT
  Age: 15873 Day
  Sex: Female

DRUGS (5)
  1. XANAX [Concomitant]
     Dosage: 0.5 TID
     Dates: start: 20050107
  2. NEURONTIN [Concomitant]
     Dates: start: 20070911
  3. EFFEXOR XR [Concomitant]
     Dosage: 225, 262.5
     Dates: start: 20050107
  4. LYRICA [Concomitant]
     Indication: PAIN IN EXTREMITY
     Dosage: 100 TO 300 MG
     Dates: start: 20070911
  5. SEROQUEL [Suspect]
     Dosage: 300 HS
     Route: 048
     Dates: start: 20050107

REACTIONS (3)
  - PANCREATITIS [None]
  - DIABETES MELLITUS [None]
  - DIABETIC NEUROPATHY [None]
